FAERS Safety Report 5973012-4 (Version None)
Quarter: 2008Q4

REPORT INFORMATION
  Report Type: 
  Country: None (occurrence: None)
  Receive Date: 20081201
  Receipt Date: 20081127
  Transmission Date: 20090506
  Serious: Yes (Death, Hospitalization, Other)
  Sender: FDA-Public Use
  Company Number: PHHY2008IT28331

PATIENT
  Sex: Female

DRUGS (8)
  1. METHERGINE [Suspect]
     Indication: CAESAREAN SECTION
     Dosage: 0.8 MG
     Route: 030
     Dates: start: 20080730, end: 20080730
  2. SYNTOCINON [Suspect]
     Dosage: 25 I.U, E.V
     Dates: start: 20080730, end: 20080730
  3. BENTELAN [Suspect]
     Indication: ANAESTHESIA
     Dosage: 4 MG E.V
     Dates: start: 20080730, end: 20080730
  4. SODIUM CHLORIDE 0.9% [Suspect]
     Dosage: 2 L E.V
     Dates: start: 20080730, end: 20080730
  5. ATROPINE SULFATE [Suspect]
     Dosage: 0.5 MG E.V
     Dates: start: 20080730, end: 20080730
  6. BUPIVACAINE [Suspect]
     Dosage: 1 POSOLOGIC UNIT, HYPERBARIC SOLUTION 1%, INTRASPINAL
     Dates: start: 20080730, end: 20080730
  7. EMAGEL [Suspect]
     Dosage: 2 L, E.V
     Dates: start: 20080730, end: 20080730
  8. GLUCOSE [Suspect]
     Dosage: 1 L,E.V
     Dates: start: 20080730

REACTIONS (2)
  - DEATH [None]
  - DISSEMINATED INTRAVASCULAR COAGULATION [None]
